FAERS Safety Report 16062924 (Version 2)
Quarter: 2019Q2

REPORT INFORMATION
  Report Type: Spontaneous
  Country: US (occurrence: US)
  Receive Date: 20190312
  Receipt Date: 20190516
  Transmission Date: 20190711
  Serious: No
  Sender: FDA-Public Use
  Company Number: US-PFIZER INC-2019100631

PATIENT
  Age: 48 Year
  Sex: Female
  Weight: 88.44 kg

DRUGS (2)
  1. GABAPENTIN. [Suspect]
     Active Substance: GABAPENTIN
     Indication: KNEE DEFORMITY
     Dosage: 600 MG, 1X/DAY [TWO PILLS AT BED TIME]
     Dates: start: 201804
  2. GABAPENTIN. [Suspect]
     Active Substance: GABAPENTIN
     Indication: PAIN
     Dosage: 900 MG, DAILY (THREE PILLS AT BEDTIME)
     Dates: start: 201902

REACTIONS (3)
  - Drug ineffective for unapproved indication [Unknown]
  - Off label use [Unknown]
  - Somnolence [Recovered/Resolved]
